FAERS Safety Report 5913096-2 (Version None)
Quarter: 2008Q4

REPORT INFORMATION
  Report Type: 
  Country: None (occurrence: None)
  Receive Date: 20081008
  Receipt Date: 20081008
  Transmission Date: 20090506
  Serious: No
  Sender: FDA-Public Use
  Company Number: None

PATIENT
  Sex: Female
  Weight: 54.4316 kg

DRUGS (2)
  1. BONIVA [Suspect]
     Indication: OSTEOPOROSIS
     Dosage: 150MG QMONTHLY PO
     Route: 048
     Dates: start: 20080705
  2. BONIVA [Suspect]
     Indication: OSTEOPOROSIS
     Dosage: 150MG QMONTHLY PO
     Route: 048
     Dates: start: 20080806

REACTIONS (13)
  - ASTHENIA [None]
  - DISTURBANCE IN ATTENTION [None]
  - DIZZINESS [None]
  - DYSARTHRIA [None]
  - FALL [None]
  - FATIGUE [None]
  - GAIT DISTURBANCE [None]
  - HEAD INJURY [None]
  - HYPERHIDROSIS [None]
  - MOOD ALTERED [None]
  - PAIN [None]
  - PALLOR [None]
  - VISION BLURRED [None]
